FAERS Safety Report 13786781 (Version 1)
Quarter: 2017Q3

REPORT INFORMATION
  Report Type: Spontaneous
  Country: US (occurrence: US)
  Receive Date: 20170725
  Receipt Date: 20170725
  Transmission Date: 20171127
  Serious: No
  Sender: FDA-Public Use
  Company Number: US-JNJFOC-20170616064

PATIENT
  Age: 95 Year
  Sex: Female
  Weight: 68.04 kg

DRUGS (1)
  1. TYLENOL EXTRA STRENGTH [Suspect]
     Active Substance: ACETAMINOPHEN
     Indication: HERPES ZOSTER
     Route: 048

REACTIONS (3)
  - Product label issue [Unknown]
  - Off label use [Unknown]
  - Product use in unapproved indication [Unknown]
